FAERS Safety Report 25508353 (Version 2)
Quarter: 2025Q4

REPORT INFORMATION
  Report Type: Report from Study
  Country: EU (occurrence: EU)
  Receive Date: 20250703
  Receipt Date: 20251202
  Transmission Date: 20260118
  Serious: Yes (Hospitalization, Other)
  Sender: SAMSUNG BIOEPIS
  Company Number: EU-SAMSUNG BIOEPIS-SB-2025-22600

PATIENT
  Age: 61 Year
  Sex: Male

DRUGS (2)
  1. IMRALDI [Suspect]
     Active Substance: ADALIMUMAB
     Indication: Rheumatoid arthritis
     Dates: end: 20241210
  2. IMRALDI [Suspect]
     Active Substance: ADALIMUMAB
     Dates: end: 20250526

REACTIONS (5)
  - Pneumonia legionella [Recovering/Resolving]
  - Weight decreased [Recovering/Resolving]
  - Rheumatoid arthritis [Recovering/Resolving]
  - Interferon gamma release assay positive [Recovering/Resolving]
  - Pulmonary fibrosis [Recovering/Resolving]

NARRATIVE: CASE EVENT DATE: 20241212
